FAERS Safety Report 19101504 (Version 1)
Quarter: 2021Q2

REPORT INFORMATION
  Report Type: Spontaneous
  Country: US (occurrence: US)
  Receive Date: 20210406
  Receipt Date: 20210406
  Transmission Date: 20210717
  Serious: No
  Sender: FDA-Public Use
  Company Number: None

PATIENT
  Age: 31 Year
  Sex: Female
  Weight: 63.9 kg

DRUGS (2)
  1. GABAPENTIN. [Concomitant]
     Active Substance: GABAPENTIN
  2. VIVITROL [Suspect]
     Active Substance: NALTREXONE
     Indication: DRUG DEPENDENCE
     Dates: start: 20210323, end: 20210323

REACTIONS (10)
  - Diarrhoea [None]
  - Depression [None]
  - Abdominal pain [None]
  - Fatigue [None]
  - Anxiety [None]
  - Loss of consciousness [None]
  - Insomnia [None]
  - Mental status changes [None]
  - Anhedonia [None]
  - Headache [None]

NARRATIVE: CASE EVENT DATE: 20210323
